FAERS Safety Report 23355317 (Version 1)
Quarter: 2024Q1

REPORT INFORMATION
  Report Type: Other
  Country: CA (occurrence: None)
  Receive Date: 20240102
  Receipt Date: 20240102
  Transmission Date: 20240409
  Serious: Yes (Life-Threatening, Hospitalization)
  Sender: FDA-Public Use
  Company Number: CA-ROCHE-3478607

PATIENT
  Age: 70 Year
  Sex: Female

DRUGS (11)
  1. ACTEMRA [Suspect]
     Active Substance: TOCILIZUMAB
     Indication: Rheumatoid arthritis
     Dosage: NO PIR
     Route: 042
     Dates: start: 20121228
  2. ASPIRIN [Concomitant]
     Active Substance: ASPIRIN
  3. CALCIUM [Concomitant]
     Active Substance: CALCIUM
  4. FOLIC ACID [Concomitant]
     Active Substance: FOLIC ACID
  5. HYDROXYCHLOROQUINE [Concomitant]
     Active Substance: HYDROXYCHLOROQUINE
  6. LASIX [Concomitant]
     Active Substance: FUROSEMIDE
  7. METHOTREXATE [Concomitant]
     Active Substance: METHOTREXATE
  8. DIGOXIN [Concomitant]
     Active Substance: DIGOXIN
  9. VASOTEC [Concomitant]
     Active Substance: ENALAPRIL MALEATE
  10. VITAMIN D [Concomitant]
     Active Substance: VITAMIN D NOS
  11. CARVEDILOL [Concomitant]
     Active Substance: CARVEDILOL

REACTIONS (3)
  - Loss of consciousness [Unknown]
  - Pneumonia [Unknown]
  - Fluid retention [Unknown]

NARRATIVE: CASE EVENT DATE: 20231211
